FAERS Safety Report 7869003-9 (Version None)
Quarter: 2011Q4

REPORT INFORMATION
  Report Type: 
  Country: None (occurrence: None)
  Receive Date: 20111021
  Receipt Date: 20111018
  Transmission Date: 20120403
  Serious: Yes (Other)
  Sender: FDA-Public Use
  Company Number: 2011SP049054

PATIENT
  Sex: Female
  Weight: 61.7 kg

DRUGS (1)
  1. IMPLANON [Suspect]
     Indication: CONTRACEPTION
     Dosage: SC
     Route: 058
     Dates: start: 20090401

REACTIONS (3)
  - INCORRECT DOSE ADMINISTERED [None]
  - IMPLANT SITE PRURITUS [None]
  - DEVICE BREAKAGE [None]
